FAERS Safety Report 25961551 (Version 1)
Quarter: 2025Q4

REPORT INFORMATION
  Report Type: Report from Study
  Country: EU (occurrence: EU)
  Receive Date: 20251027
  Receipt Date: 20251027
  Transmission Date: 20260117
  Serious: Yes (Other)
  Sender: BOEHRINGER INGELHEIM
  Company Number: None

PATIENT
  Age: 80 Year
  Sex: Male

DRUGS (6)
  1. NINTEDANIB [Suspect]
     Active Substance: NINTEDANIB
     Indication: Pulmonary fibrosis
     Route: 048
     Dates: start: 20240301, end: 20240809
  2. ASPIRIN [Concomitant]
     Active Substance: ASPIRIN
     Indication: Aneurysm
     Route: 048
     Dates: start: 20200306
  3. ANORO ELLIPTA 55 MCG/22 MCG POLVO PARA INHALACION (UNIDOSIS) [Concomitant]
     Indication: Pulmonary fibrosis
     Route: 055
     Dates: start: 20200128
  4. telmisart?n + hidroclorotiazida [Concomitant]
     Indication: Essential hypertension
     Route: 048
     Dates: start: 20160612
  5. TWICOR 20 MG/10 MG COMPRIMIDOS RECUBIERTOS CON PELICULA [Concomitant]
     Indication: Dyslipidaemia
     Route: 048
     Dates: start: 20220727
  6. TAMSULOSIN HYDROCHLORIDE [Concomitant]
     Active Substance: TAMSULOSIN HYDROCHLORIDE
     Indication: Benign prostatic hyperplasia
     Route: 048
     Dates: start: 20180628

REACTIONS (2)
  - Diarrhoea [Recovered/Resolved]
  - Abnormal loss of weight [Recovered/Resolved]

NARRATIVE: CASE EVENT DATE: 20240315
